FAERS Safety Report 12797908 (Version 1)
Quarter: 2016Q3

REPORT INFORMATION
  Report Type: Spontaneous
  Country: BR (occurrence: BR)
  Receive Date: 20160930
  Receipt Date: 20160930
  Transmission Date: 20161109
  Serious: Yes (Hospitalization, Other)
  Sender: FDA-Public Use
  Company Number: BR-GLAXOSMITHKLINE-BR2016GSK142328

PATIENT
  Sex: Female

DRUGS (5)
  1. PREDNISONE. [Concomitant]
     Active Substance: PREDNISONE
     Indication: BRONCHIAL DISORDER
     Dosage: 25 MG, UNK
  2. SERETIDE [Suspect]
     Active Substance: FLUTICASONE PROPIONATE\SALMETEROL XINAFOATE
     Indication: ASTHMA
     Dosage: 2 PUFF(S), QD
     Route: 055
  3. SELOZOK (METOPROLOL SUCCINATE) [Concomitant]
     Indication: CARDIAC DISORDER
  4. CARVEDILOL. [Concomitant]
     Active Substance: CARVEDILOL
     Indication: CARDIAC DISORDER
  5. PURAN [Concomitant]
     Active Substance: LEVOTHYROXINE SODIUM
     Indication: HYPERTHYROIDISM
     Dosage: 75 MG, QD

REACTIONS (13)
  - Aortic calcification [Unknown]
  - Dizziness [Unknown]
  - Ischaemic stroke [Recovered/Resolved]
  - Deafness [Unknown]
  - Hypertension [Not Recovered/Not Resolved]
  - Pain [Unknown]
  - Fatigue [Unknown]
  - Blood pressure fluctuation [Unknown]
  - Osteoarthritis [Unknown]
  - Dyspnoea [Unknown]
  - Off label use [Unknown]
  - Hand deformity [Unknown]
  - Angiopathy [Not Recovered/Not Resolved]
